FAERS Safety Report 25234526 (Version 1)
Quarter: 2025Q2

REPORT INFORMATION
  Report Type: Spontaneous
  Country: IT (occurrence: IT)
  Receive Date: 20250424
  Receipt Date: 20250424
  Transmission Date: 20250717
  Serious: Yes (Other)
  Sender: HIKMA
  Company Number: IT-MLMSERVICE-20250404-PI469291-00165-2

PATIENT
  Age: 68 Year
  Sex: Male

DRUGS (4)
  1. CAPECITABINE [Suspect]
     Active Substance: CAPECITABINE
     Indication: Mixed hepatocellular cholangiocarcinoma
     Dosage: 500 MILLIGRAM, Q12H
     Route: 065
     Dates: start: 2017
  2. CAPECITABINE [Suspect]
     Active Substance: CAPECITABINE
     Indication: Metastases to lung
  3. GEMCITABINE [Suspect]
     Active Substance: GEMCITABINE
     Indication: Mixed hepatocellular cholangiocarcinoma
     Dosage: 1000 MILLIGRAM/SQ. METER, WEEKLY
     Route: 065
     Dates: start: 2017
  4. GEMCITABINE [Suspect]
     Active Substance: GEMCITABINE
     Indication: Metastases to lung

REACTIONS (1)
  - Haematotoxicity [Unknown]

NARRATIVE: CASE EVENT DATE: 20170101
